FAERS Safety Report 16668764 (Version 1)
Quarter: 2019Q3

REPORT INFORMATION
  Report Type: Spontaneous
  Country: US (occurrence: US)
  Receive Date: 20190619
  Receipt Date: 20190619
  Transmission Date: 20191004
  Serious: Yes (Other)
  Sender: FDA-Public Use
  Company Number: None

PATIENT
  Age: 50 Year
  Sex: Female
  Weight: 72.57 kg

DRUGS (11)
  1. HEARTBURN MED [Concomitant]
  2. PREMPRO [Suspect]
     Active Substance: ESTROGENS, CONJUGATED\MEDROXYPROGESTERONE ACETATE
     Indication: HOT FLUSH
     Dosage: ?          OTHER STRENGTH:0.625 - 5 MG;QUANTITY:1 DF DOSAGE FORM;?
     Route: 048
     Dates: start: 20140825, end: 20160601
  3. WOMEN^S VITAMIN [Concomitant]
  4. TYNOEL [Concomitant]
  5. CALICUM [Concomitant]
  6. PREMPRO [Suspect]
     Active Substance: ESTROGENS, CONJUGATED\MEDROXYPROGESTERONE ACETATE
     Indication: NIGHT SWEATS
     Dosage: ?          OTHER STRENGTH:0.625 - 5 MG;QUANTITY:1 DF DOSAGE FORM;?
     Route: 048
     Dates: start: 20140825, end: 20160601
  7. JOINTMED [Concomitant]
  8. PROBOTICS [Concomitant]
  9. CRANBERRY. [Concomitant]
     Active Substance: CRANBERRY
  10. SLEEP PILLS [Concomitant]
  11. ALLERGY PILLS [Concomitant]
     Active Substance: UNSPECIFIED INGREDIENT

REACTIONS (2)
  - Neoplasm malignant [None]
  - Ovarian cyst [None]

NARRATIVE: CASE EVENT DATE: 20181218
